FAERS Safety Report 5677068-8 (Version None)
Quarter: 2008Q1

REPORT INFORMATION
  Report Type: 
  Country: None (occurrence: None)
  Receive Date: 20080324
  Receipt Date: 20080313
  Transmission Date: 20080703
  Serious: Yes (Life-Threatening, Hospitalization, Other)
  Sender: FDA-Public Use
  Company Number: HQWYE390221OCT03

PATIENT
  Sex: Female

DRUGS (3)
  1. PREMPRO [Suspect]
     Dosage: UNSPECIFIED DOSAGE FOR A NUMBER OF YEARS
     Route: 048
  2. PROVERA [Suspect]
     Dosage: UNSPECIFIED DOSAGE FOR A NUMBER OF YEARS
     Route: 048
  3. PREMARIN [Suspect]
     Dosage: UNSPECIFIED DOSAGE FOR SEVERAL YEARS
     Route: 048

REACTIONS (1)
  - BREAST CANCER METASTATIC [None]
